FAERS Safety Report 7944577-8 (Version None)
Quarter: 2011Q4

REPORT INFORMATION
  Report Type: 
  Country: None (occurrence: None)
  Receive Date: 20111129
  Receipt Date: 20111117
  Transmission Date: 20120403
  Serious: Yes (Hospitalization)
  Sender: FDA-Public Use
  Company Number: GB-JNJFOC-20071003776

PATIENT
  Sex: Female
  Weight: 60 kg

DRUGS (15)
  1. INFLIXIMAB [Suspect]
     Indication: RHEUMATOID ARTHRITIS
     Route: 042
     Dates: start: 20070524
  2. INFLIXIMAB [Suspect]
     Route: 042
     Dates: start: 20070710
  3. INFLIXIMAB [Suspect]
     Route: 042
     Dates: start: 20070614
  4. INFLIXIMAB [Suspect]
     Route: 042
     Dates: start: 20070830
  5. INFLIXIMAB [Suspect]
     Route: 042
     Dates: start: 20070109
  6. FOLIC ACID [Concomitant]
  7. OMEPRAZOLE [Concomitant]
  8. VITAMIN B-12 [Concomitant]
  9. ZOPICLONE [Concomitant]
  10. ACETAMINOPHEN AND CODEINE PHOSPHATE [Concomitant]
  11. METHOTREXATE [Concomitant]
  12. CYCLAZINE [Concomitant]
  13. INFLIXIMAB [Suspect]
     Route: 042
     Dates: start: 20070516
  14. ASACOL [Concomitant]
  15. MAXALON [Concomitant]

REACTIONS (1)
  - LISTERIA SEPSIS [None]
